FAERS Safety Report 23592962 (Version 2)
Quarter: 2024Q3

REPORT INFORMATION
  Report Type: Spontaneous
  Country: GB (occurrence: GB)
  Receive Date: 20240304
  Receipt Date: 20240710
  Transmission Date: 20241017
  Serious: Yes (Hospitalization, Other)
  Sender: PFIZER
  Company Number: GB-TAKEDA-2024TUS017457

PATIENT
  Age: 38 Year
  Sex: Female

DRUGS (5)
  1. ADCETRIS [Suspect]
     Active Substance: BRENTUXIMAB VEDOTIN
     Indication: Hodgkin^s disease
     Dosage: 1.2 MILLIGRAM/KILOGRAM;
     Route: 065
  2. ADCETRIS [Suspect]
     Active Substance: BRENTUXIMAB VEDOTIN
     Dosage: 0.9 MILLIGRAM/KILOGRAM;
     Route: 065
  3. DOXORUBICIN [Suspect]
     Active Substance: DOXORUBICIN
     Indication: Hodgkin^s disease
     Dosage: UNK
     Route: 065
  4. VINBLASTINE [Suspect]
     Active Substance: VINBLASTINE
     Indication: Hodgkin^s disease
     Dosage: UNK REDUCED BY 50 PERCENT FROM CYCLE 4
     Route: 065
  5. DACARBAZINE [Suspect]
     Active Substance: DACARBAZINE
     Indication: Hodgkin^s disease
     Dosage: UNK
     Route: 065

REACTIONS (5)
  - Febrile neutropenia [Unknown]
  - Neuropathy peripheral [Recovering/Resolving]
  - Fine motor skill dysfunction [Unknown]
  - Impaired work ability [Unknown]
  - Paraesthesia [Unknown]
